FAERS Safety Report 26069744 (Version 2)
Quarter: 2025Q4

REPORT INFORMATION
  Report Type: Spontaneous
  Country: NZ (occurrence: NZ)
  Receive Date: 20251120
  Receipt Date: 20251125
  Transmission Date: 20260118
  Serious: Yes (Other)
  Sender: SANDOZ
  Company Number: NZ-SANDOZ-SDZ2025NZ086462

PATIENT
  Sex: Female

DRUGS (2)
  1. ESTRADIOL [Suspect]
     Active Substance: ESTRADIOL
     Indication: Product used for unknown indication
     Dosage: UNK
     Route: 062
  2. ESTRADIOL [Suspect]
     Active Substance: ESTRADIOL
     Indication: Product used for unknown indication
     Dosage: UNK
     Route: 062

REACTIONS (4)
  - Postmenopausal haemorrhage [Unknown]
  - Drug ineffective [Unknown]
  - Circumstance or information capable of leading to device use error [Unknown]
  - Product adhesion issue [Unknown]
